FAERS Safety Report 4688434-1 (Version None)
Quarter: 2005Q2

REPORT INFORMATION
  Report Type: 
  Country: None (occurrence: None)
  Receive Date: 20050609
  Receipt Date: 20050531
  Transmission Date: 20051028
  Serious: Yes (Hospitalization)
  Sender: FDA-Public Use
  Company Number: 2005054808

PATIENT
  Age: 70 Year
  Sex: Male
  Weight: 80 kg

DRUGS (5)
  1. CABERGOLINE [Suspect]
     Indication: PARKINSON'S DISEASE
     Dosage: 1MG (DAILY), ORAL; SEE IMAGE
     Route: 048
     Dates: start: 20011120, end: 20020218
  2. CABERGOLINE [Suspect]
     Indication: PARKINSON'S DISEASE
     Dosage: 1MG (DAILY), ORAL; SEE IMAGE
     Route: 048
     Dates: start: 20010925
  3. SINEMET [Concomitant]
  4. FLORINEF [Concomitant]
  5. WARFARIN SODIUM [Concomitant]

REACTIONS (1)
  - PLEURAL EFFUSION [None]
